FAERS Safety Report 16863426 (Version 1)
Quarter: 2019Q3

REPORT INFORMATION
  Report Type: Spontaneous
  Country: JP (occurrence: JP)
  Receive Date: 20190927
  Receipt Date: 20190927
  Transmission Date: 20191005
  Serious: Yes (Other)
  Sender: FDA-Public Use
  Company Number: JP-009507513-1909JPN002665J

PATIENT
  Age: 2 Year
  Sex: Male

DRUGS (1)
  1. NU-LOTAN TABLETS 50MG [Suspect]
     Active Substance: LOSARTAN
     Dosage: UNK
     Route: 064

REACTIONS (3)
  - Nephrogenic diabetes insipidus [Unknown]
  - Foetal exposure during pregnancy [Unknown]
  - Renal impairment [Unknown]
